FAERS Safety Report 9262736 (Version 2)
Quarter: 2013Q3

REPORT INFORMATION
  Report Type: Spontaneous
  Country: US (occurrence: US)
  Receive Date: 20130430
  Receipt Date: 20130704
  Transmission Date: 20140515
  Serious: No
  Sender: FDA-Public Use
  Company Number: US-PFIZER INC-2013131086

PATIENT
  Age: 45 Year
  Sex: Female

DRUGS (3)
  1. ADVIL [Suspect]
     Indication: MUSCULOSKELETAL DISCOMFORT
     Dosage: 400 MG (2 CAPSULES OF 200 MG), THREE TIMES A DAY
     Route: 048
     Dates: start: 201304
  2. ADVIL [Suspect]
     Indication: LIMB DISCOMFORT
  3. PLAVIX [Suspect]
     Indication: STENT PLACEMENT
     Dosage: UNK

REACTIONS (3)
  - Panic attack [Unknown]
  - Asthenia [Unknown]
  - Dysgeusia [Unknown]
